FAERS Safety Report 19078198 (Version 1)
Quarter: 2021Q1

REPORT INFORMATION
  Report Type: Spontaneous
  Country: CA (occurrence: CA)
  Receive Date: 20210331
  Receipt Date: 20210331
  Transmission Date: 20210420
  Serious: Yes (Hospitalization)
  Sender: FDA-Public Use
  Company Number: CA-JNJFOC-20210352221

PATIENT
  Age: 60 Year
  Sex: Male

DRUGS (1)
  1. REMICADE [Suspect]
     Active Substance: INFLIXIMAB
     Indication: CROHN^S DISEASE
     Route: 042

REACTIONS (7)
  - Pneumonia [Unknown]
  - Arthralgia [Unknown]
  - Off label use [Unknown]
  - Pain in extremity [Unknown]
  - Bone pain [Unknown]
  - Intentional product use issue [Unknown]
  - Pyrexia [Unknown]
